FAERS Safety Report 25892865 (Version 1)
Quarter: 2025Q4

REPORT INFORMATION
  Report Type: Spontaneous
  Country: EU (occurrence: EU)
  Receive Date: 20251007
  Receipt Date: 20251007
  Transmission Date: 20260118
  Serious: Yes (Life-Threatening, Hospitalization)
  Sender: ABBVIE
  Company Number: None

PATIENT
  Age: 57 Year
  Sex: Female
  Weight: 96 kg

DRUGS (5)
  1. RINVOQ [Suspect]
     Active Substance: UPADACITINIB
     Indication: Psoriatic arthropathy
     Dosage: 15 MG
     Route: 048
     Dates: start: 20221109, end: 20250903
  2. PREDNISONE [Concomitant]
     Active Substance: PREDNISONE
     Indication: Psoriatic arthropathy
     Dosage: 5 MG TABLETS EFG, 30 TABLETS
     Route: 048
     Dates: start: 20180301
  3. ARAVA [Concomitant]
     Active Substance: LEFLUNOMIDE
     Indication: Psoriatic arthropathy
     Dosage: 20MG, 30 TABLETS
     Route: 048
     Dates: start: 20200601
  4. METHOTREXATE SODIUM [Concomitant]
     Active Substance: METHOTREXATE SODIUM
     Indication: Psoriatic arthropathy
     Dosage: 17,5 MG, 15 MG/0.6ML INJECTABLE SOLUTION IN PRE-FILLED SYRINGE, 4 SYRINGES OF 0.6 ML
     Route: 058
     Dates: start: 20180601
  5. PROLIA [Concomitant]
     Active Substance: DENOSUMAB
     Indication: Osteoporosis
     Dosage: 60MG, SOLUTION FOR INJECTION IN PRE-FILLED SYRINGE, 1 PRE-FILLED SYRINGE OF 1 ML
     Route: 058
     Dates: start: 20230801

REACTIONS (1)
  - Embolism [Recovered/Resolved]

NARRATIVE: CASE EVENT DATE: 20250717
